FAERS Safety Report 5210694-9 (Version None)
Quarter: 2007Q1

REPORT INFORMATION
  Report Type: 
  Country: None (occurrence: None)
  Receive Date: 20070117
  Receipt Date: 20070111
  Transmission Date: 20070707
  Serious: Yes (Life-Threatening)
  Sender: FDA-Public Use
  Company Number: FR-GLAXOSMITHKLINE-B0454098A

PATIENT
  Age: 55 Year
  Sex: Male

DRUGS (4)
  1. AUGMENTIN '125' [Suspect]
     Route: 042
     Dates: start: 20060720, end: 20060720
  2. DIPRIVAN [Concomitant]
     Route: 065
     Dates: start: 20060720, end: 20060720
  3. SUFENTA [Concomitant]
     Route: 065
     Dates: start: 20060720, end: 20060720
  4. CELOCURIN [Concomitant]
     Route: 065
     Dates: start: 20060720, end: 20060720

REACTIONS (5)
  - ANAPHYLACTOID REACTION [None]
  - DRUG HYPERSENSITIVITY [None]
  - HISTAMINE LEVEL INCREASED [None]
  - HYPOTENSION [None]
  - TACHYCARDIA [None]
